FAERS Safety Report 4690441-X (Version None)
Quarter: 2005Q2

REPORT INFORMATION
  Report Type: 
  Country: None (occurrence: None)
  Receive Date: 20050615
  Receipt Date: 20030825
  Transmission Date: 20051028
  Serious: Yes (Death, Other)
  Sender: FDA-Public Use
  Company Number: 200310977JP

PATIENT
  Age: 36 Year
  Sex: Female
  Weight: 50.5 kg

DRUGS (10)
  1. TAXOTERE [Suspect]
     Indication: GASTRIC CANCER
     Route: 041
     Dates: start: 20030806, end: 20030806
  2. MEROPEN [Suspect]
     Indication: PYREXIA
     Dosage: DOSE: 1V
     Route: 041
     Dates: start: 20030812, end: 20030814
  3. MEROPEN [Suspect]
     Indication: WHITE BLOOD CELL COUNT DECREASED
     Dosage: DOSE: 1V
     Route: 041
     Dates: start: 20030812, end: 20030814
  4. RINDERON [Concomitant]
     Indication: NAUSEA
     Route: 041
  5. KYTRIL [Concomitant]
     Indication: NAUSEA
     Route: 041
     Dates: start: 20030806
  6. GASTER [Concomitant]
     Indication: GASTRIC ULCER
     Route: 041
  7. LASIX [Concomitant]
     Indication: ASCITES
     Route: 041
  8. SOLDACTONE [Concomitant]
     Indication: ASCITES
     Route: 041
  9. FLUMARIN [Concomitant]
     Indication: PYREXIA
     Route: 041
  10. DORMICUM [Concomitant]
     Indication: INSOMNIA
     Dosage: DOSE: 5A
     Dates: start: 20030806, end: 20030903

REACTIONS (20)
  - ALOPECIA [None]
  - ASCITES [None]
  - BLISTER [None]
  - BLOOD PRESSURE INCREASED [None]
  - DIARRHOEA [None]
  - ERYTHEMA [None]
  - FEELING HOT [None]
  - GENERAL PHYSICAL HEALTH DETERIORATION [None]
  - HEPATIC FAILURE [None]
  - HERPES SIMPLEX [None]
  - HOT FLUSH [None]
  - MUSCULAR WEAKNESS [None]
  - ORAL CANDIDIASIS [None]
  - PRURITUS [None]
  - PYREXIA [None]
  - SEPSIS [None]
  - STEVENS-JOHNSON SYNDROME [None]
  - TOXIC EPIDERMAL NECROLYSIS [None]
  - URTICARIA [None]
  - WHITE BLOOD CELL COUNT DECREASED [None]
